FAERS Safety Report 6995162-6 (Version None)
Quarter: 2010Q3

REPORT INFORMATION
  Report Type: 
  Country: None (occurrence: None)
  Receive Date: 20100915
  Receipt Date: 20100901
  Transmission Date: 20110219
  Serious: Yes (Other)
  Sender: FDA-Public Use
  Company Number: ACO_02050_2010

PATIENT
  Sex: Female
  Weight: 68.0396 kg

DRUGS (13)
  1. AMPYRA [Suspect]
     Indication: GAIT DISTURBANCE
     Dosage: 10 MG BID ORAL
     Route: 048
     Dates: start: 20100708
  2. ZANAFLEX [Suspect]
     Indication: PRODUCT USED FOR UNKNOWN INDICATION
     Dosage: DF
  3. ZETIA [Suspect]
     Indication: HYPOCHOLESTEROLAEMIA
     Dosage: DF
  4. PRAVASTATIN [Suspect]
     Indication: HYPOCHOLESTEROLAEMIA
     Dosage: DF
  5. LISINOPRIL [Concomitant]
  6. ATENOLOL [Concomitant]
  7. CLONIDINE [Concomitant]
  8. SYNTHROID [Concomitant]
  9. VESICARE [Concomitant]
  10. IRON SULFATETHIAMIN COMPOUND TAB [Concomitant]
  11. BETASERON [Concomitant]
  12. POTASSIUM [Concomitant]
  13. CELEXA [Concomitant]

REACTIONS (5)
  - ABDOMINAL DISCOMFORT [None]
  - ABDOMINAL DISTENSION [None]
  - ALANINE AMINOTRANSFERASE INCREASED [None]
  - ASPARTATE AMINOTRANSFERASE DECREASED [None]
  - BLOOD ALKALINE PHOSPHATASE INCREASED [None]
